FAERS Safety Report 20108514 (Version 12)
Quarter: 2023Q1

REPORT INFORMATION
  Report Type: Report from Study
  Country: CN (occurrence: None)
  Receive Date: 20211124
  Receipt Date: 20230120
  Transmission Date: 20230418
  Serious: Yes (Hospitalization)
  Sender: FDA-Public Use
  Company Number: CN-ROCHE-2958609

PATIENT
  Age: 61 Year
  Sex: Male
  Weight: 61 kg

DRUGS (40)
  1. ATEZOLIZUMAB [Suspect]
     Active Substance: ATEZOLIZUMAB
     Indication: Small cell lung cancer extensive stage
     Dosage: 11/SEP/2021:MOST RECENT DOSE OF ATEZOLIZUMAB PRIOR TO SAE ONSET
     Route: 041
     Dates: start: 20210619
  2. BEVACIZUMAB [Suspect]
     Active Substance: BEVACIZUMAB
     Indication: Small cell lung cancer extensive stage
     Dosage: 23/OCT/2021:MOST RECENT DOSE OF BEVACIZUMAB/PLACEBO PRIOR TO SAE ONSET
     Route: 042
     Dates: start: 20210619
  3. CARBOPLATIN [Suspect]
     Active Substance: CARBOPLATIN
     Indication: Small cell lung cancer extensive stage
     Dosage: 22/AUG/2021:MOST RECENT DOSE OF CARBOPLATIN PRIOR TO AE ONSET
     Route: 042
     Dates: start: 20210619
  4. ETOPOSIDE [Suspect]
     Active Substance: ETOPOSIDE
     Indication: Small cell lung cancer extensive stage
     Dosage: 24/AUG/2021:MOST RECENT DOSE OF ETOPOSIDE PRIOR TO AE ONSET
     Route: 042
     Dates: start: 20210619
  5. GLIMEPIRIDE [Concomitant]
     Active Substance: GLIMEPIRIDE
     Indication: Type 2 diabetes mellitus
     Route: 048
     Dates: start: 2017, end: 20210616
  6. ACARBOSE [Concomitant]
     Active Substance: ACARBOSE
     Indication: Type 2 diabetes mellitus
     Route: 048
     Dates: start: 20210616, end: 20210617
  7. INSULIN ASPART [Concomitant]
     Active Substance: INSULIN ASPART
     Indication: Type 2 diabetes mellitus
     Route: 042
     Dates: start: 20210616, end: 20210621
  8. LACTULOSE [Concomitant]
     Active Substance: LACTULOSE
     Indication: Constipation
     Route: 048
     Dates: start: 20210616, end: 20210621
  9. FOLIC ACID [Concomitant]
     Active Substance: FOLIC ACID
     Indication: Anaemia
     Route: 048
     Dates: start: 20210617, end: 20210621
  10. ONDANSETRON HYDROCHLORIDE [Concomitant]
     Active Substance: ONDANSETRON HYDROCHLORIDE
     Indication: Prophylaxis
     Route: 042
     Dates: start: 20210619, end: 20210621
  11. ONDANSETRON HYDROCHLORIDE [Concomitant]
     Active Substance: ONDANSETRON HYDROCHLORIDE
     Route: 042
     Dates: start: 20210710, end: 20210712
  12. ONDANSETRON HYDROCHLORIDE [Concomitant]
     Active Substance: ONDANSETRON HYDROCHLORIDE
     Route: 048
     Dates: start: 20210725
  13. ONDANSETRON HYDROCHLORIDE [Concomitant]
     Active Substance: ONDANSETRON HYDROCHLORIDE
     Route: 048
     Dates: start: 20210713, end: 20210714
  14. ONDANSETRON HYDROCHLORIDE [Concomitant]
     Active Substance: ONDANSETRON HYDROCHLORIDE
     Route: 042
     Dates: start: 20210801, end: 20210803
  15. ONDANSETRON HYDROCHLORIDE [Concomitant]
     Active Substance: ONDANSETRON HYDROCHLORIDE
     Route: 042
     Dates: start: 20210822, end: 20210824
  16. INSULIN NOS [Concomitant]
     Active Substance: INSULIN NOS
     Indication: Type 2 diabetes mellitus
     Route: 042
     Dates: start: 20210619, end: 20210621
  17. INSULIN NOS [Concomitant]
     Active Substance: INSULIN NOS
     Route: 042
     Dates: start: 20210710, end: 20210712
  18. INSULIN NOS [Concomitant]
     Active Substance: INSULIN NOS
     Route: 042
     Dates: start: 20210801, end: 20210803
  19. VITAMIN B6 [Concomitant]
     Active Substance: PYRIDOXINE HYDROCHLORIDE
     Indication: Prophylaxis
     Route: 042
     Dates: start: 20210619, end: 20210621
  20. VITAMIN B6 [Concomitant]
     Active Substance: PYRIDOXINE HYDROCHLORIDE
     Route: 042
     Dates: start: 20210710, end: 20210712
  21. VITAMIN B6 [Concomitant]
     Active Substance: PYRIDOXINE HYDROCHLORIDE
     Route: 042
     Dates: start: 20210801, end: 20210803
  22. VITAMIN B6 [Concomitant]
     Active Substance: PYRIDOXINE HYDROCHLORIDE
     Route: 042
     Dates: start: 20210822, end: 20210824
  23. GLIMEPIRIDE [Concomitant]
     Active Substance: GLIMEPIRIDE
     Indication: Type 2 diabetes mellitus
     Route: 048
     Dates: start: 20210621
  24. METFORMIN HYDROCHLORIDE [Concomitant]
     Active Substance: METFORMIN HYDROCHLORIDE
     Indication: Type 2 diabetes mellitus
     Route: 048
     Dates: start: 20210621, end: 20210728
  25. METFORMIN HYDROCHLORIDE [Concomitant]
     Active Substance: METFORMIN HYDROCHLORIDE
     Route: 048
     Dates: start: 20210801, end: 20210908
  26. METFORMIN HYDROCHLORIDE [Concomitant]
     Active Substance: METFORMIN HYDROCHLORIDE
     Route: 048
     Dates: start: 20210911
  27. LORATADINE [Concomitant]
     Active Substance: LORATADINE
     Indication: Erythema
     Route: 048
     Dates: start: 20210625, end: 20210630
  28. LORATADINE [Concomitant]
     Active Substance: LORATADINE
     Route: 048
     Dates: start: 20210709, end: 20210710
  29. LORATADINE [Concomitant]
     Active Substance: LORATADINE
     Route: 048
     Dates: start: 20210511, end: 20211112
  30. DESONIDE [Concomitant]
     Active Substance: DESONIDE
     Indication: Erythema
     Dates: start: 20210625
  31. ESOMEPRAZOLE MAGNESIUM [Concomitant]
     Active Substance: ESOMEPRAZOLE MAGNESIUM
     Indication: Prophylaxis
     Route: 048
     Dates: start: 20210625, end: 20210712
  32. OMEPRAZOLE [Concomitant]
     Active Substance: OMEPRAZOLE
     Indication: Prophylaxis
     Route: 048
     Dates: start: 20210725
  33. MUCOPOLYSACCHARIDE POLYSULFATE [Concomitant]
     Indication: Erythema
     Dates: start: 20210711, end: 20210711
  34. LEUCOGEN [Concomitant]
     Active Substance: LEUCOGEN
     Indication: Prophylaxis
     Route: 048
     Dates: start: 20210824, end: 20210909
  35. BATILOL [Concomitant]
     Active Substance: BATILOL
     Indication: Prophylaxis
     Route: 048
     Dates: start: 20210824, end: 20210909
  36. DEXAMETHASONE SODIUM PHOSPHATE [Concomitant]
     Active Substance: DEXAMETHASONE SODIUM PHOSPHATE
     Indication: Prophylaxis
     Route: 042
     Dates: start: 20210619, end: 20210619
  37. HALOMETASONE [Concomitant]
     Active Substance: HALOMETASONE
     Indication: Erythema
     Dosage: DOSE UNIT: G (GRAM)
     Route: 048
     Dates: start: 20211105, end: 20211112
  38. EBASTINE [Concomitant]
     Active Substance: EBASTINE
     Indication: Erythema
     Route: 048
     Dates: start: 20211105, end: 20211129
  39. LEVOTHYROXINE SODIUM [Concomitant]
     Active Substance: LEVOTHYROXINE SODIUM
     Indication: Hypothyroidism
     Route: 048
     Dates: start: 20211114
  40. LEVOTHYROXINE SODIUM [Concomitant]
     Active Substance: LEVOTHYROXINE SODIUM
     Dates: start: 20210114

REACTIONS (1)
  - Wound infection [Recovered/Resolved]

NARRATIVE: CASE EVENT DATE: 20211113
